FAERS Safety Report 25764612 (Version 1)
Quarter: 2025Q3

REPORT INFORMATION
  Report Type: Spontaneous
  Country: US (occurrence: US)
  Receive Date: 20250905
  Receipt Date: 20250905
  Transmission Date: 20251020
  Serious: No
  Sender: DOMPE FARMACEUTICI
  Company Number: US-FARMAPROD-202502-0355

PATIENT
  Sex: Female

DRUGS (18)
  1. OXERVATE [Suspect]
     Active Substance: CENEGERMIN-BKBJ
     Indication: Neurotrophic keratopathy
     Route: 047
     Dates: start: 20241223
  2. OMEPRAZOLE [Concomitant]
     Active Substance: OMEPRAZOLE
  3. CHOLESTYRAMINE [Concomitant]
     Active Substance: CHOLESTYRAMINE
  4. QUERCETIN [Concomitant]
     Active Substance: QUERCETIN
  5. METFORMIN [Concomitant]
     Active Substance: METFORMIN HYDROCHLORIDE
  6. ELIQUIS [Concomitant]
     Active Substance: APIXABAN
  7. VITAMIN D3 [Concomitant]
     Active Substance: CHOLECALCIFEROL
  8. ZINC-220 [Concomitant]
  9. COENZYME Q-10 [Concomitant]
  10. BIOTIN [Concomitant]
     Active Substance: BIOTIN
  11. HYDROCODONE BITARTRATE AND ACETAMINOPHEN [Concomitant]
     Active Substance: ACETAMINOPHEN\HYDROCODONE BITARTRATE
  12. DEXAMETHASONE [Concomitant]
     Active Substance: DEXAMETHASONE
  13. LOMOTIL [Concomitant]
     Active Substance: ATROPINE SULFATE\DIPHENOXYLATE HYDROCHLORIDE
  14. IMODIUM A-D [Concomitant]
     Active Substance: LOPERAMIDE HYDROCHLORIDE
  15. REFRESH DIGITAL PF [Concomitant]
     Active Substance: CARBOXYMETHYLCELLULOSE SODIUM\GLYCERIN\POLYSORBATE 80
  16. FASLODEX [Concomitant]
     Active Substance: FULVESTRANT
  17. NAPROXEN [Concomitant]
     Active Substance: NAPROXEN
  18. TRUQAP [Concomitant]
     Active Substance: CAPIVASERTIB

REACTIONS (2)
  - Product dose omission issue [Unknown]
  - Therapy interrupted [Unknown]
